FAERS Safety Report 21529363 (Version 1)
Quarter: 2022Q4

REPORT INFORMATION
  Report Type: Spontaneous
  Country: SG (occurrence: SG)
  Receive Date: 20221031
  Receipt Date: 20221031
  Transmission Date: 20230113
  Serious: Yes (Other)
  Sender: FDA-Public Use
  Company Number: SG-AstraZeneca-2022A354511

PATIENT

DRUGS (1)
  1. TRASTUZUMAB DERUXTECAN [Suspect]
     Active Substance: TRASTUZUMAB DERUXTECAN
     Indication: Product used for unknown indication
     Dosage: UNK
     Route: 042

REACTIONS (5)
  - Abdominal distension [Unknown]
  - Dry skin [Unknown]
  - Dyspnoea [Unknown]
  - Dyspepsia [Unknown]
  - Decreased appetite [Unknown]
